FAERS Safety Report 8773451 (Version 2)
Quarter: 2012Q4

REPORT INFORMATION
  Report Type: Report from Study
  Country: JP (occurrence: JP)
  Receive Date: 20120907
  Receipt Date: 20120911
  Transmission Date: 20130627
  Serious: Yes (Hospitalization)
  Sender: FDA-Public Use
  Company Number: JP-VERTEX PHARMACEUTICAL INC.-AE-2012-005211

PATIENT
  Age: 72 Year
  Sex: Female

DRUGS (5)
  1. VX-950 [Suspect]
     Indication: HEPATITIS C
  2. PEGINTRON [Concomitant]
     Route: 058
     Dates: start: 20120301
  3. REBETOL [Concomitant]
     Indication: HEPATITIS C
     Route: 048
     Dates: start: 20120301, end: 20120315
  4. REBETOL [Concomitant]
     Route: 048
     Dates: start: 20120316, end: 20120329
  5. REBETOL [Concomitant]
     Dosage: 200 mg, UNK
     Route: 048
     Dates: start: 20120330, end: 20120405

REACTIONS (1)
  - Anaemia [Recovered/Resolved]
